FAERS Safety Report 5964303-1 (Version None)
Quarter: 2008Q4

REPORT INFORMATION
  Report Type: 
  Country: None (occurrence: None)
  Receive Date: 20081124
  Receipt Date: 20081112
  Transmission Date: 20090506
  Serious: Yes (Hospitalization, Other)
  Sender: FDA-Public Use
  Company Number: DE-PFIZER INC-2008083931

PATIENT
  Sex: Male

DRUGS (2)
  1. CABERGOLINE [Suspect]
     Indication: PARKINSON'S DISEASE
     Route: 048
     Dates: start: 20050401, end: 20080401
  2. MADOPAR [Concomitant]

REACTIONS (4)
  - FATIGUE [None]
  - OBSESSIVE-COMPULSIVE DISORDER [None]
  - ROAD TRAFFIC ACCIDENT [None]
  - THINKING ABNORMAL [None]
